FAERS Safety Report 18845216 (Version 1)
Quarter: 2021Q1

REPORT INFORMATION
  Report Type: Report from Study
  Country: US (occurrence: US)
  Receive Date: 20210203
  Receipt Date: 20210203
  Transmission Date: 20210419
  Serious: No
  Sender: FDA-Public Use
  Company Number: US-EXELIXIS-CABO-20030690

PATIENT
  Age: 60 Year
  Sex: Male

DRUGS (4)
  1. CABOMETYX [Suspect]
     Active Substance: CABOZANTINIB S-MALATE
     Dosage: 40 MG
  2. CABOMETYX [Suspect]
     Active Substance: CABOZANTINIB S-MALATE
     Dosage: 40 MG, QD
     Dates: start: 20200620
  3. CABOMETYX [Suspect]
     Active Substance: CABOZANTINIB S-MALATE
     Indication: RENAL CELL CARCINOMA STAGE IV
     Dosage: 60 MG
     Dates: start: 201904
  4. CABOMETYX [Suspect]
     Active Substance: CABOZANTINIB S-MALATE
     Dosage: 60 MG TABLET CUT TO 2/3 DOSE
     Dates: start: 20200617

REACTIONS (16)
  - Blister [Not Recovered/Not Resolved]
  - Renal impairment [Unknown]
  - Weight decreased [Recovering/Resolving]
  - Pulmonary embolism [Unknown]
  - Taste disorder [Not Recovered/Not Resolved]
  - Diarrhoea [Recovering/Resolving]
  - Decreased appetite [Not Recovered/Not Resolved]
  - Alopecia [Unknown]
  - Wrong technique in product usage process [Unknown]
  - Restless legs syndrome [Unknown]
  - Fatigue [Not Recovered/Not Resolved]
  - Hair colour changes [Unknown]
  - Hypothyroidism [Unknown]
  - Anaemia [Unknown]
  - Impaired gastric emptying [Unknown]
  - Nausea [Not Recovered/Not Resolved]

NARRATIVE: CASE EVENT DATE: 202006
